FAERS Safety Report 17274555 (Version 1)
Quarter: 2020Q1

REPORT INFORMATION
  Report Type: Spontaneous
  Country: DE (occurrence: DE)
  Receive Date: 20200115
  Receipt Date: 20200115
  Transmission Date: 20200409
  Serious: Yes (Other)
  Sender: FDA-Public Use
  Company Number: DE-ELI_LILLY_AND_COMPANY-DE201912010571

PATIENT
  Sex: Female

DRUGS (5)
  1. LIPROLOG LISPRO [Suspect]
     Active Substance: INSULIN LISPRO
     Indication: DIABETES MELLITUS
     Dosage: 15 INTERNATIONAL UNIT, TID
     Route: 058
     Dates: start: 2015
  2. LIPROLOG LISPRO [Suspect]
     Active Substance: INSULIN LISPRO
     Dosage: 17 INTERNATIONAL UNIT, TID
     Route: 058
  3. LIPROLOG [Suspect]
     Active Substance: INSULIN LISPRO
     Indication: DIABETES MELLITUS
     Dosage: 15 INTERNATIONAL UNIT, TID
     Route: 058
     Dates: start: 201911
  4. LANTUS [Concomitant]
     Active Substance: INSULIN GLARGINE
     Indication: DIABETES MELLITUS
     Dosage: 20 INTERNATIONAL UNIT, EACH EVENING
  5. LIPROLOG LISPRO [Suspect]
     Active Substance: INSULIN LISPRO
     Dosage: 18 INTERNATIONAL UNIT, TID
     Route: 058

REACTIONS (4)
  - Depression [Unknown]
  - Stress [Not Recovered/Not Resolved]
  - Blood glucose increased [Unknown]
  - Blood glucose increased [Unknown]

NARRATIVE: CASE EVENT DATE: 201911
